FAERS Safety Report 8221089-8 (Version None)
Quarter: 2012Q1

REPORT INFORMATION
  Report Type: 
  Country: None (occurrence: None)
  Receive Date: 20120320
  Receipt Date: 20120309
  Transmission Date: 20120608
  Serious: Yes (Hospitalization)
  Sender: FDA-Public Use
  Company Number: FR-ELI_LILLY_AND_COMPANY-FR201203002495

PATIENT
  Sex: Female

DRUGS (4)
  1. ZOFRAN [Concomitant]
     Indication: PREMEDICATION
     Dosage: 8 MG / 4 ML
     Route: 042
     Dates: start: 20120123
  2. METHYLPREDNISOLONE MERCK [Concomitant]
     Indication: PREMEDICATION
     Dosage: 60 MG, UNK
     Route: 042
     Dates: start: 20120123
  3. ELOXATIN [Concomitant]
     Indication: OVARIAN CANCER
     Dosage: 170 MG, UNK
     Route: 042
     Dates: start: 20120123
  4. GEMZAR [Suspect]
     Indication: OVARIAN CANCER
     Dosage: 1680 MG, UNK
     Route: 042
     Dates: start: 20120123

REACTIONS (4)
  - MUSCLE CONTRACTURE [None]
  - HYPOAESTHESIA [None]
  - OFF LABEL USE [None]
  - VISUAL IMPAIRMENT [None]
